FAERS Safety Report 16556537 (Version 1)
Quarter: 2019Q3

REPORT INFORMATION
  Report Type: Spontaneous
  Country: US (occurrence: US)
  Receive Date: 20190711
  Receipt Date: 20190711
  Transmission Date: 20191004
  Serious: Yes (Other)
  Sender: FDA-Public Use
  Company Number: US-MALLINCKRODT-T201904780

PATIENT
  Age: 67 Year
  Sex: Female

DRUGS (1)
  1. H.P. ACTHAR [Suspect]
     Active Substance: CORTICOTROPIN
     Indication: MULTIPLE SCLEROSIS
     Dosage: 80 UNITS, ONCE DAILY FOR 5 DAYS
     Route: 058
     Dates: start: 201906

REACTIONS (2)
  - Anaemia [Unknown]
  - Disease recurrence [Unknown]

NARRATIVE: CASE EVENT DATE: 201906
